FAERS Safety Report 8367019-X (Version None)
Quarter: 2012Q2

REPORT INFORMATION
  Report Type: 
  Country: None (occurrence: None)
  Receive Date: 20120517
  Receipt Date: 20120514
  Transmission Date: 20120825
  Serious: Yes (Hospitalization)
  Sender: FDA-Public Use
  Company Number: US-ASTRAZENECA-2012SE30806

PATIENT
  Age: 47 Year
  Sex: Male
  Weight: 117.9 kg

DRUGS (2)
  1. TYLENOL (CAPLET) [Concomitant]
     Indication: ANALGESIC THERAPY
  2. SEROQUEL XR [Suspect]
     Indication: BIPOLAR DISORDER
     Route: 048

REACTIONS (3)
  - MEMORY IMPAIRMENT [None]
  - WHEEZING [None]
  - LOSS OF CONSCIOUSNESS [None]
